FAERS Safety Report 5166029-3 (Version None)
Quarter: 2006Q4

REPORT INFORMATION
  Report Type: 
  Country: None (occurrence: None)
  Receive Date: 20061128
  Receipt Date: 20061115
  Transmission Date: 20070319
  Serious: Yes (Life-Threatening, Other)
  Sender: FDA-Public Use
  Company Number: 2006US-04481

PATIENT
  Age: 15 Year
  Sex: Male

DRUGS (2)
  1. ISOTRETINOIN [Suspect]
     Indication: ACNE CYSTIC
     Dosage: 40 MG, QD
     Dates: start: 20051201, end: 20060131
  2. ISOTRETINOIN [Suspect]
     Indication: ACNE CYSTIC
     Dosage: 40 MG, QD
     Dates: start: 20060201, end: 20060601

REACTIONS (10)
  - ARTHRALGIA [None]
  - CHAPPED LIPS [None]
  - DECREASED APPETITE [None]
  - DEPRESSION [None]
  - DISTURBANCE IN ATTENTION [None]
  - DRY SKIN [None]
  - MYALGIA [None]
  - NERVOUS SYSTEM DISORDER [None]
  - SUICIDAL IDEATION [None]
  - WEIGHT DECREASED [None]
